FAERS Safety Report 4401784-9 (Version None)
Quarter: 2004Q3

REPORT INFORMATION
  Report Type: 
  Country: None (occurrence: None)
  Receive Date: 20040719
  Receipt Date: 20040318
  Transmission Date: 20050211
  Serious: Yes (Death, Hospitalization, Other)
  Sender: FDA-Public Use
  Company Number: JP-MERCK-0403USA01932

PATIENT
  Age: 74 Year
  Sex: Female

DRUGS (8)
  1. AMINO ACIDS (UNSPECIFIED) [Concomitant]
     Route: 042
     Dates: start: 20040311, end: 20040313
  2. PEPCID [Suspect]
     Indication: GASTRITIS
     Route: 042
     Dates: start: 20040304, end: 20040315
  3. PEPCID [Concomitant]
     Route: 048
     Dates: end: 20040303
  4. FLUMARIN [Concomitant]
     Route: 042
     Dates: start: 20040315, end: 20040317
  5. HUMULIN R [Concomitant]
     Route: 058
     Dates: start: 20040304, end: 20040307
  6. PREDONINE [Concomitant]
     Route: 065
     Dates: start: 20040226, end: 20040507
  7. SODIUM CHLORIDE [Concomitant]
     Route: 065
  8. VITAMEDIN [Concomitant]
     Route: 042
     Dates: start: 20040304, end: 20040307

REACTIONS (2)
  - SEPTIC SHOCK [None]
  - THROMBOCYTOPENIA [None]
